FAERS Safety Report 25546477 (Version 2)
Quarter: 2025Q3

REPORT INFORMATION
  Report Type: Report from Study
  Country: US (occurrence: US)
  Receive Date: 20250713
  Receipt Date: 20250816
  Transmission Date: 20251021
  Serious: Yes (Hospitalization)
  Sender: SERVIER
  Company Number: US-SERVIER-S25008473

PATIENT

DRUGS (1)
  1. VORASIDENIB [Suspect]
     Active Substance: VORASIDENIB
     Indication: Brain neoplasm malignant
     Dosage: 40 MG, QD
     Route: 048
     Dates: start: 20240801

REACTIONS (1)
  - Nephrolithiasis [Unknown]

NARRATIVE: CASE EVENT DATE: 20250601
